FAERS Safety Report 16892566 (Version 1)
Quarter: 2019Q4

REPORT INFORMATION
  Report Type: Report from Study
  Country: US (occurrence: US)
  Receive Date: 20191007
  Receipt Date: 20191007
  Transmission Date: 20200122
  Serious: Yes (Death, Hospitalization)
  Sender: FDA-Public Use
  Company Number: US-TAKEDA-2018TUS017552

PATIENT
  Age: 54 Year
  Sex: Male

DRUGS (2)
  1. PONATINIB [Suspect]
     Active Substance: PONATINIB
     Indication: CHLOROMA
     Dosage: 45 MILLIGRAM, QD
     Route: 048
     Dates: start: 20180502
  2. PONATINIB [Suspect]
     Active Substance: PONATINIB
     Indication: CHRONIC MYELOID LEUKAEMIA
     Dosage: 30 MILLIGRAM, QD
     Route: 048

REACTIONS (9)
  - Death [Fatal]
  - Paraesthesia [Unknown]
  - Pain [Unknown]
  - Pneumonia [Unknown]
  - Back pain [Unknown]
  - Off label use [Unknown]
  - Diarrhoea [Unknown]
  - Blood pressure increased [Unknown]
  - Musculoskeletal pain [Unknown]

NARRATIVE: CASE EVENT DATE: 20180502
